FAERS Safety Report 5602266-9 (Version None)
Quarter: 2008Q1

REPORT INFORMATION
  Report Type: 
  Country: None (occurrence: None)
  Receive Date: 20080118
  Receipt Date: 20080104
  Transmission Date: 20080703
  Serious: Yes (Death)
  Sender: FDA-Public Use
  Company Number: 2008001147

PATIENT
  Sex: Male

DRUGS (7)
  1. DIPHENHYDRAMINE HCL [Suspect]
     Dosage: UNSPECIFIED, ORAL
     Route: 048
  2. IBUPROFEN [Suspect]
     Dosage: UNSPECIFIED, ORAL
     Route: 048
  3. OXYCODONE HCL [Suspect]
     Dosage: UNSPECIFIED, ORAL
     Route: 048
  4. CARISOPRODOL [Suspect]
     Dosage: UNSPECIFIED, ORAL
     Route: 048
  5. HYDROCODONE BITARTRATE [Suspect]
     Dosage: UNSPECIFIED, ORAL
     Route: 048
  6. WARFARIN SODIUM [Suspect]
     Dosage: UNSPECIFIED, ORAL
     Route: 048
  7. PREGABALIN (PREGABALIN) [Suspect]
     Dosage: UNSPECIFIED, ORAL
     Route: 048

REACTIONS (3)
  - CARDIAC ARREST [None]
  - DRUG TOXICITY [None]
  - RESPIRATORY ARREST [None]
